FAERS Safety Report 12599811 (Version 1)
Quarter: 2016Q3

REPORT INFORMATION
  Report Type: Spontaneous
  Country: US (occurrence: US)
  Receive Date: 20160727
  Receipt Date: 20160727
  Transmission Date: 20161109
  Serious: Yes (Other)
  Sender: FDA-Public Use
  Company Number: US-BAYER-2016-145358

PATIENT
  Age: 32 Year
  Sex: Female

DRUGS (1)
  1. MIRENA [Suspect]
     Active Substance: LEVONORGESTREL
     Indication: CONTRACEPTION
     Dosage: 20 MCG/24HR, CONT
     Route: 015
     Dates: start: 20071120

REACTIONS (5)
  - Complication of device removal [None]
  - Device difficult to use [None]
  - Smear cervix abnormal [None]
  - Device use issue [None]
  - Uterine perforation [None]

NARRATIVE: CASE EVENT DATE: 2008
